FAERS Safety Report 5304343-9 (Version None)
Quarter: 2007Q2

REPORT INFORMATION
  Report Type: 
  Country: None (occurrence: None)
  Receive Date: 20070413
  Receipt Date: 20070406
  Transmission Date: 20071010
  Serious: Yes (Hospitalization)
  Sender: FDA-Public Use
  Company Number: 2007BI004070

PATIENT
  Age: 59 Year
  Sex: Male

DRUGS (6)
  1. AVONEX [Suspect]
     Indication: MULTIPLE SCLEROSIS
     Dosage: 30 UG; QW; IM
     Route: 030
     Dates: start: 20040501, end: 20060101
  2. VICODIN [Concomitant]
  3. ZOLOFT [Concomitant]
  4. BACLOFEN [Concomitant]
  5. LASIX [Concomitant]
  6. NEURONTIN [Concomitant]

REACTIONS (1)
  - LOSS OF CONSCIOUSNESS [None]
